FAERS Safety Report 8352034-2 (Version None)
Quarter: 2012Q2

REPORT INFORMATION
  Report Type: 
  Country: None (occurrence: None)
  Receive Date: 20120509
  Receipt Date: 20120426
  Transmission Date: 20120825
  Serious: Yes (Hospitalization)
  Sender: FDA-Public Use
  Company Number: IMP_05867_2012

PATIENT
  Age: 8 Month
  Sex: Male

DRUGS (2)
  1. FUROSEMIDE [Concomitant]
  2. DIGOXIN [Suspect]
     Indication: DIURETIC THERAPY
     Dosage: (NOT THE PRESCRIBE DOSE ORAL), (10 UG/KG BID ORAL)
     Route: 048

REACTIONS (8)
  - ELECTROCARDIOGRAM ST SEGMENT DEPRESSION [None]
  - BRADYCARDIA [None]
  - TOXICITY TO VARIOUS AGENTS [None]
  - CARDIOACTIVE DRUG LEVEL ABOVE THERAPEUTIC [None]
  - OXYGEN SATURATION DECREASED [None]
  - HYPERKALAEMIA [None]
  - DRUG ADMINISTRATION ERROR [None]
  - INCORRECT DOSE ADMINISTERED [None]
